FAERS Safety Report 13695069 (Version 3)
Quarter: 2017Q3

REPORT INFORMATION
  Report Type: Report from Study
  Country: US (occurrence: US)
  Receive Date: 20170627
  Receipt Date: 20170717
  Transmission Date: 20171127
  Serious: Yes (Hospitalization, Other)
  Sender: FDA-Public Use
  Company Number: US-ALLERGAN-1716889US

PATIENT
  Age: 46 Year
  Sex: Female

DRUGS (1)
  1. CARIPRAZINE HCL 1.5MG CAP (TBD) [Suspect]
     Active Substance: CARIPRAZINE
     Indication: BIPOLAR DISORDER
     Dosage: 6 MG, QD
     Route: 048

REACTIONS (4)
  - Suicide attempt [Recovered/Resolved]
  - Suicide attempt [Unknown]
  - Drug dose omission [Unknown]
  - Feeling abnormal [Recovered/Resolved]

NARRATIVE: CASE EVENT DATE: 20170414
